FAERS Safety Report 6105771-4 (Version None)
Quarter: 2009Q1

REPORT INFORMATION
  Report Type: 
  Country: None (occurrence: None)
  Receive Date: 20090306
  Receipt Date: 20090225
  Transmission Date: 20090719
  Serious: Yes (Other)
  Sender: FDA-Public Use
  Company Number: US-JNJFOC-20090300268

PATIENT
  Age: 9 Month
  Sex: Male
  Weight: 13.61 kg

DRUGS (2)
  1. CONCENTRATED MOTRIN INFANTS [Suspect]
     Indication: NASOPHARYNGITIS
     Route: 048
  2. CONCENTRATED MOTRIN INFANTS [Suspect]
     Indication: TEETHING
     Route: 048

REACTIONS (4)
  - INAPPROPRIATE SCHEDULE OF DRUG ADMINISTRATION [None]
  - INTENTIONAL OVERDOSE [None]
  - NASOPHARYNGITIS [None]
  - PRODUCT CONTAMINATION [None]
